FAERS Safety Report 24425097 (Version 1)
Quarter: 2024Q4

REPORT INFORMATION
  Report Type: Spontaneous
  Country: CN (occurrence: CN)
  Receive Date: 20241010
  Receipt Date: 20241010
  Transmission Date: 20250114
  Serious: Yes (Hospitalization, Other)
  Sender: MERCK
  Company Number: CN-009507513-2409CHN010057

PATIENT
  Age: 65 Year
  Sex: Male

DRUGS (5)
  1. TEMODAL [Suspect]
     Active Substance: TEMOZOLOMIDE
     Indication: Glioblastoma
     Dosage: 75 MG/M2/QD, D1-42
     Route: 048
     Dates: start: 20221114, end: 20221215
  2. TEMODAL [Suspect]
     Active Substance: TEMOZOLOMIDE
     Dosage: MAINTENANCE TREATMENT: 150 MG/M2, QD, FOR THE FIRST CYCLE, D1-5, FOLLOWED BY A 23-DAY BREAK
     Route: 048
     Dates: start: 20230123
  3. TEMODAL [Suspect]
     Active Substance: TEMOZOLOMIDE
     Dosage: MAINTENANCE TREATMENT: 200 MG/M2/DAY FOR THE 2-6 CYCLE, D1-D5, FOLLOWED BY A 23-DAY BREAK.
     Route: 048
  4. TEMODAL [Suspect]
     Active Substance: TEMOZOLOMIDE
     Dosage: MAINTENANCE TREATMENT: 150 MG/M2, QD, FOR THE FIRST CYCLE, D1-5, FOLLOWED BY A 23-BREAK
     Route: 048
     Dates: start: 20240528
  5. TEMODAL [Suspect]
     Active Substance: TEMOZOLOMIDE
     Dosage: MAINTENANCE TREATMENT:200 MG/M2, QD, FOR THE 2-6 CYCLE, D1-D5, FOLLOWED BY A 23-DAY BREAK.
     Route: 048
     Dates: start: 2024

REACTIONS (4)
  - Recurrent cancer [Unknown]
  - Fall [Unknown]
  - Muscular weakness [Unknown]
  - Gait disturbance [Unknown]

NARRATIVE: CASE EVENT DATE: 20240101
